FAERS Safety Report 8961756 (Version 1)
Quarter: 2012Q4

REPORT INFORMATION
  Report Type: 
  Country: US (occurrence: US)
  Receive Date: 20121212
  Receipt Date: 20121212
  Transmission Date: 20130627
  Serious: No
  Sender: FDA-Public Use
  Company Number: US-VERTEX PHARMACEUTICALS INC.-2012-025694

PATIENT
  Age: 45 Year
  Sex: Female
  Weight: 65 kg

DRUGS (5)
  1. VX-950 (TELAPREVIR) [Suspect]
     Indication: HEPATITIS C
     Dosage: 750 mg, tid
     Route: 048
  2. PEGASYS [Concomitant]
     Indication: HEPATITIS C
     Dosage: 180 ?g, UNK
  3. RIBAPAK [Concomitant]
     Indication: HEPATITIS C
     Dosage: 1000/ day
  4. LUMIGAN SOL [Concomitant]
     Dosage: 0.01%
  5. MULTIVITAMIN                       /00097801/ [Concomitant]

REACTIONS (2)
  - Asthenia [Unknown]
  - Haemorrhoids [Unknown]
